FAERS Safety Report 6762800-2 (Version None)
Quarter: 2010Q2

REPORT INFORMATION
  Report Type: 
  Country: None (occurrence: None)
  Receive Date: 20100609
  Receipt Date: 20100601
  Transmission Date: 20101027
  Serious: Yes (Other)
  Sender: FDA-Public Use
  Company Number: US-ASTRAZENECA-2010SE14711

PATIENT
  Age: 41 Year
  Sex: Female
  Weight: 59.9 kg

DRUGS (2)
  1. SEROQUEL XR [Suspect]
     Indication: BIPOLAR DISORDER
     Route: 048
     Dates: start: 20040215, end: 20100114
  2. VITAMIN B-12 [Concomitant]
     Dosage: EVERY THREE WEEKS

REACTIONS (2)
  - GLYCOSYLATED HAEMOGLOBIN INCREASED [None]
  - LEUKOPENIA [None]
